FAERS Safety Report 25998510 (Version 1)
Quarter: 2025Q4

REPORT INFORMATION
  Report Type: Spontaneous
  Country: JP (occurrence: JP)
  Receive Date: 20251105
  Receipt Date: 20251105
  Transmission Date: 20260117
  Serious: Yes (Hospitalization)
  Sender: JOHNSON AND JOHNSON
  Company Number: JP-MTPC-MTPC2025-0019461

PATIENT
  Age: 56 Year
  Sex: Male

DRUGS (2)
  1. REMICADE [Suspect]
     Active Substance: INFLIXIMAB
     Indication: Colitis
     Dosage: 5 MILLIGRAM/KILOGRAM
     Route: 041
  2. PREDNISOLONE [Concomitant]
     Active Substance: PREDNISOLONE
     Indication: Colitis
     Route: 065

REACTIONS (3)
  - Megacolon [Recovering/Resolving]
  - Gastrointestinal perforation [Recovering/Resolving]
  - Off label use [Unknown]
